FAERS Safety Report 15328020 (Version 3)
Quarter: 2020Q2

REPORT INFORMATION
  Report Type: Report from Study
  Country: KR (occurrence: KR)
  Receive Date: 20180828
  Receipt Date: 20200512
  Transmission Date: 20200713
  Serious: Yes (Hospitalization)
  Sender: FDA-Public Use
  Company Number: KR-AMGEN-KORNI2018117529

PATIENT
  Age: 55 Year
  Sex: Male
  Weight: 72.8 kg

DRUGS (33)
  1. CRAVIT [Concomitant]
     Active Substance: LEVOFLOXACIN
     Dosage: 500 MILLIGRAM
     Dates: start: 20180531, end: 20180615
  2. ZOLEDRONIC ACID [Concomitant]
     Active Substance: ZOLEDRONIC ACID
     Dosage: 5 MILLIGRAM
     Dates: start: 20180716, end: 20180716
  3. ROSUVAMIBE [Concomitant]
     Dosage: 1 UNK
     Dates: start: 20170807
  4. CARFILZOMIB [Suspect]
     Active Substance: CARFILZOMIB
     Dosage: 56 MILLIGRAM/SQ. METER
     Route: 042
  5. SEPTRIN [Concomitant]
     Active Substance: SULFAMETHOXAZOLE\TRIMETHOPRIM
     Dosage: 1 UNK
     Dates: start: 20180427, end: 20180913
  6. CODEINE PHOSPHATE [Concomitant]
     Active Substance: CODEINE PHOSPHATE
     Dosage: 1 UNK
     Dates: start: 20180606, end: 20180615
  7. RENAMEZIN [Concomitant]
     Dosage: 1 UNK
     Dates: start: 20180731
  8. DEXAMETHASONE. [Concomitant]
     Active Substance: DEXAMETHASONE
     Indication: PLASMA CELL MYELOMA
     Dosage: 20 MILLIGRAM
     Dates: start: 20180525
  9. MACPERAN [Concomitant]
     Active Substance: METOCLOPRAMIDE HYDROCHLORIDE
     Dosage: 5-10 MILLIGRAM
     Dates: start: 20180629, end: 20180709
  10. SUGANON [Concomitant]
     Active Substance: EVOGLIPTIN TARTRATE
     Dosage: 1 UNK
     Dates: start: 20180731
  11. TASNA [Concomitant]
     Dosage: 1000 MILLIGRAM
     Dates: start: 20180804, end: 20180809
  12. CAVID [Concomitant]
     Dosage: 1 UNK
     Dates: start: 20180727
  13. FEXORIN [Concomitant]
     Dosage: 40 MILLIGRAM
     Dates: start: 20180206, end: 20180814
  14. ERDOS [Concomitant]
     Active Substance: ERDOSTEINE
     Dosage: 300 MILLIGRAM
     Dates: start: 20180531, end: 20180615
  15. LYRICA [Concomitant]
     Active Substance: PREGABALIN
     Dosage: 150 MILLIGRAM
     Dates: start: 20151208, end: 20180730
  16. LANTUS [Concomitant]
     Active Substance: INSULIN GLARGINE
     Dosage: 8 UNK
     Dates: start: 20180601
  17. URUSA [Concomitant]
     Active Substance: URSODIOL
     Dosage: 100 MILLIGRAM
     Dates: start: 20180712, end: 20180718
  18. FEROBA YOU [Concomitant]
     Dosage: 1 UNK
     Dates: start: 20170904
  19. DIAMICRON [Concomitant]
     Active Substance: GLICLAZIDE
     Dosage: 1 UNK
     Dates: start: 20180605, end: 20180608
  20. ACTOS [Concomitant]
     Active Substance: PIOGLITAZONE HYDROCHLORIDE
     Dosage: 30 MILLIGRAM
     Dates: start: 20180607, end: 20180608
  21. CARFILZOMIB [Suspect]
     Active Substance: CARFILZOMIB
     Indication: PLASMA CELL MYELOMA
     Dosage: 20 MILLIGRAM/SQ. METER
     Route: 042
     Dates: start: 20180427
  22. DENOGAN [Concomitant]
     Active Substance: PROPACETAMOL HYDROCHLORIDE
     Dosage: 1 GRAM
     Dates: start: 20180531, end: 20180603
  23. MEROPEN [Concomitant]
     Active Substance: MEROPENEM
     Dosage: 1 GRAM
     Dates: start: 20180602, end: 20180608
  24. VITAMIN D3 B.O.N. [Concomitant]
     Dosage: 5 MILLIGRAM
     Dates: start: 20180716, end: 20180716
  25. VACRAX [Concomitant]
     Dosage: 400 MILLIGRAM
     Dates: start: 20180427
  26. SYNATURA [Concomitant]
     Dosage: 15 MILLILITER
     Dates: start: 20180531, end: 20180605
  27. FOLIC ACID. [Concomitant]
     Active Substance: FOLIC ACID
     Dosage: 1 MILLIGRAM
     Dates: start: 20170904
  28. KALIMATE [Concomitant]
     Active Substance: CALCIUM POLYSTYRENE SULFONATE
     Dosage: 10 GRAM
     Dates: start: 20180524, end: 20180525
  29. TARGIN [Concomitant]
     Active Substance: NALOXONE HYDROCHLORIDE\OXYCODONE HYDROCHLORIDE
     Dosage: 1 UNK
     Dates: start: 20151107
  30. MUTERAN [Concomitant]
     Active Substance: ACETYLCYSTEINE
     Dosage: 200 MILLIGRAM
     Dates: start: 20180601, end: 20180605
  31. CALCIUM CARBONATE. [Concomitant]
     Active Substance: CALCIUM CARBONATE
     Dosage: 500 MILLIGRAM
     Dates: start: 20180803, end: 20180809
  32. NEXIUM [Concomitant]
     Active Substance: ESOMEPRAZOLE MAGNESIUM
     Dosage: 20 MILLIGRAM
     Dates: start: 20180727
  33. TRAJENTA [Concomitant]
     Active Substance: LINAGLIPTIN
     Dosage: 5 MILLIGRAM
     Dates: start: 20150909, end: 20180607

REACTIONS (1)
  - Hypophagia [Recovered/Resolved]

NARRATIVE: CASE EVENT DATE: 20180811
